FAERS Safety Report 14436346 (Version 1)
Quarter: 2018Q1

REPORT INFORMATION
  Report Type: Spontaneous
  Country: US (occurrence: US)
  Receive Date: 20180124
  Receipt Date: 20180124
  Transmission Date: 20180509
  Serious: Yes (Disabling)
  Sender: FDA-Public Use
  Company Number: None

PATIENT
  Age: 10 Year
  Sex: Male
  Weight: 51.75 kg

DRUGS (1)
  1. MIRALAX [Suspect]
     Active Substance: POLYETHYLENE GLYCOL 3350
     Indication: CONSTIPATION
     Route: 048
     Dates: start: 20120612, end: 20140206

REACTIONS (4)
  - Blepharospasm [None]
  - Muscle twitching [None]
  - Anger [None]
  - Disturbance in attention [None]

NARRATIVE: CASE EVENT DATE: 20131115
